FAERS Safety Report 14909161 (Version 5)
Quarter: 2019Q2

REPORT INFORMATION
  Report Type: Spontaneous
  Country: US (occurrence: US)
  Receive Date: 20180517
  Receipt Date: 20190506
  Transmission Date: 20190711
  Serious: Yes (Hospitalization, Other)
  Sender: FDA-Public Use
  Company Number: US-PFIZER INC-2018198226

PATIENT
  Age: 79 Year
  Sex: Female
  Weight: 78 kg

DRUGS (3)
  1. FLECTOR [Suspect]
     Active Substance: DICLOFENAC EPOLAMINE
     Indication: FIBROMYALGIA
  2. FLECTOR [Suspect]
     Active Substance: DICLOFENAC EPOLAMINE
     Indication: SPINAL STENOSIS
     Dosage: UNK, AS NEEDED [CHANGE EVERY 12 HOURS]
     Route: 062
  3. FLECTOR [Suspect]
     Active Substance: DICLOFENAC EPOLAMINE
     Indication: ARTHRITIS

REACTIONS (7)
  - Application site pain [Recovered/Resolved]
  - Product use in unapproved indication [Recovered/Resolved]
  - Malaise [Unknown]
  - Hypoaesthesia [Unknown]
  - Vulvovaginal mycotic infection [Recovered/Resolved]
  - Influenza [Unknown]
  - Application site hypoaesthesia [Recovered/Resolved]

NARRATIVE: CASE EVENT DATE: 201805
